FAERS Safety Report 10249312 (Version 1)
Quarter: 2014Q2

REPORT INFORMATION
  Report Type: Spontaneous
  Country: US (occurrence: None)
  Receive Date: 20140522
  Receipt Date: 20140522
  Transmission Date: 20141212
  Serious: No
  Sender: FDA-Public Use
  Company Number: 1000066718

PATIENT
  Sex: Female

DRUGS (2)
  1. TUDORZA PRESSAIR [Suspect]
     Dates: start: 201404
  2. BREO (FLUTICASONE FUROATE, VILANTEROL) [Concomitant]

REACTIONS (1)
  - Drug ineffective [None]
